FAERS Safety Report 5026453-6 (Version None)
Quarter: 2006Q2

REPORT INFORMATION
  Report Type: 
  Country: None (occurrence: None)
  Receive Date: 20060613
  Receipt Date: 20060613
  Transmission Date: 20061013
  Serious: Yes (Other)
  Sender: FDA-Public Use
  Company Number: None

PATIENT
  Age: 56 Year
  Sex: Male
  Weight: 63.1 kg

DRUGS (2)
  1. TAXOTERE [Suspect]
     Indication: BREAST CANCER STAGE IV
     Dosage: 59MG   Q WEEK   IV
     Route: 042
     Dates: start: 20050812, end: 20060421
  2. REFLUDAN [Suspect]
     Dosage: 65MG   Q 12HOURS   SQ
     Route: 058
     Dates: start: 20050812, end: 20060421

REACTIONS (6)
  - AXILLARY VEIN THROMBOSIS [None]
  - OEDEMA PERIPHERAL [None]
  - SUBCLAVIAN VEIN THROMBOSIS [None]
  - VENA CAVA THROMBOSIS [None]
  - VENOUS OCCLUSION [None]
  - VENOUS THROMBOSIS [None]
